FAERS Safety Report 14984462 (Version 1)
Quarter: 2018Q2

REPORT INFORMATION
  Report Type: Spontaneous
  Country: GB (occurrence: GB)
  Receive Date: 20180607
  Receipt Date: 20180607
  Transmission Date: 20180711
  Serious: Yes (Disabling)
  Sender: FDA-Public Use
  Company Number: GB-PFIZER INC-2018228185

PATIENT
  Age: 32 Year
  Sex: Female
  Weight: 63.5 kg

DRUGS (1)
  1. CHAMPIX [Suspect]
     Active Substance: VARENICLINE TARTRATE
     Indication: SMOKING CESSATION THERAPY
     Dosage: UNK (INCREASED DOSAGE AS PER INSTRUCTIONS)
     Route: 048
     Dates: start: 20150801, end: 20150810

REACTIONS (6)
  - Paranoia [Recovered/Resolved]
  - Intrusive thoughts [Recovered/Resolved]
  - Psychotic disorder [Recovered/Resolved]
  - Condition aggravated [Unknown]
  - Mood swings [Recovered/Resolved]
  - Suicidal ideation [Recovered/Resolved]

NARRATIVE: CASE EVENT DATE: 20150810
